FAERS Safety Report 21081516 (Version 2)
Quarter: 2022Q4

REPORT INFORMATION
  Report Type: Spontaneous
  Country: GB (occurrence: GB)
  Receive Date: 20220714
  Receipt Date: 20221110
  Transmission Date: 20230112
  Serious: Yes (Other)
  Sender: FDA-Public Use
  Company Number: GB-ASTELLAS-2022US024727

PATIENT
  Age: 76 Year
  Sex: Male

DRUGS (1)
  1. ENFORTUMAB VEDOTIN [Suspect]
     Active Substance: ENFORTUMAB VEDOTIN
     Indication: Transitional cell carcinoma
     Dosage: 1.25 MG/KG, CYCLIC (DAY 1, 8, 15 OF 4 WEEK CYCLE)
     Route: 065

REACTIONS (5)
  - Transitional cell carcinoma recurrent [Unknown]
  - Neuropathy peripheral [Unknown]
  - Skin toxicity [Unknown]
  - Rash [Unknown]
  - Fatigue [Unknown]
